FAERS Safety Report 6041132-4 (Version None)
Quarter: 2009Q1

REPORT INFORMATION
  Report Type: 
  Country: None (occurrence: None)
  Receive Date: 20090116
  Receipt Date: 20080829
  Transmission Date: 20090719
  Serious: No
  Sender: FDA-Public Use
  Company Number: US-BRISTOL-MYERS SQUIBB COMPANY-14319842

PATIENT
  Age: 25 Year
  Sex: Female

DRUGS (3)
  1. ABILIFY [Suspect]
     Indication: PSYCHOTIC DISORDER
     Dosage: STARTED AT 10 MG AND INCREASED TO 20 MG AND REDUCED TO 10MG.
  2. KLONOPIN [Concomitant]
  3. LEXAPRO [Concomitant]

REACTIONS (1)
  - AKATHISIA [None]
